FAERS Safety Report 11519705 (Version 1)
Quarter: 2015Q3

REPORT INFORMATION
  Report Type: Report from Study
  Country: US (occurrence: US)
  Receive Date: 20150918
  Receipt Date: 20150918
  Transmission Date: 20151125
  Serious: No
  Sender: FDA-Public Use
  Company Number: US-AMGEN-USASP2015094738

PATIENT
  Age: 66 Year
  Sex: Male

DRUGS (1)
  1. ENBREL [Suspect]
     Active Substance: ETANERCEPT
     Indication: PRODUCT USED FOR UNKNOWN INDICATION
     Dosage: 50 MG, QWK
     Route: 065
     Dates: start: 201409

REACTIONS (11)
  - Musculoskeletal stiffness [Unknown]
  - Decreased appetite [Unknown]
  - Prostatitis [Unknown]
  - Wrist deformity [Unknown]
  - Infection [Unknown]
  - Dyspepsia [Unknown]
  - Arthralgia [Unknown]
  - Pain [Unknown]
  - Hypertension [Unknown]
  - Hand deformity [Unknown]
  - Abdominal discomfort [Unknown]
